FAERS Safety Report 8023965-8 (Version None)
Quarter: 2012Q1

REPORT INFORMATION
  Report Type: 
  Country: None (occurrence: None)
  Receive Date: 20120105
  Receipt Date: 20111229
  Transmission Date: 20120608
  Serious: Yes (Other)
  Sender: FDA-Public Use
  Company Number: GB-PFIZER INC-2012000125

PATIENT
  Age: 20 Year
  Sex: Female
  Weight: 67 kg

DRUGS (4)
  1. ACETAMINOPHEN AND CODEINE PHOSPHATE [Interacting]
     Indication: PAIN
     Dosage: 2 DF, 4X/DAY
  2. NAPROXEN [Interacting]
     Indication: PAIN
     Dosage: 250 MG, 2X/DAY
     Route: 048
     Dates: start: 20111027, end: 20111205
  3. PREGABALIN [Suspect]
     Indication: PAIN
     Dosage: 75 MG, 2X/DAY
     Route: 048
     Dates: start: 20111025, end: 20111130
  4. NORGESTIMATE AND ETHINYL ESTRADIOL [Interacting]
     Indication: CONTRACEPTION

REACTIONS (3)
  - UNINTENDED PREGNANCY [None]
  - DRUG INTERACTION [None]
  - DRUG INEFFECTIVE [None]
